FAERS Safety Report 22360634 (Version 1)
Quarter: 2023Q2

REPORT INFORMATION
  Report Type: Spontaneous
  Country: US (occurrence: US)
  Receive Date: 20230524
  Receipt Date: 20230524
  Transmission Date: 20230722
  Serious: Yes (Life-Threatening, Hospitalization)
  Sender: FDA-Public Use
  Company Number: US-drreddys-LIT/USA/23/0165257

PATIENT
  Age: 48 Year
  Sex: Male

DRUGS (1)
  1. IBUPROFEN [Suspect]
     Active Substance: IBUPROFEN
     Indication: Back pain
     Dosage: 10-12 TABLETS (600 MG/TABLET) EVERY 4-6H ALMOST DAILY FOR ABOUT ONE YEAR
     Route: 048

REACTIONS (4)
  - Hypokalaemia [Recovering/Resolving]
  - Metabolic acidosis [Unknown]
  - Drug abuse [Unknown]
  - Overdose [Unknown]
